FAERS Safety Report 6759021-6 (Version None)
Quarter: 2010Q2

REPORT INFORMATION
  Report Type: 
  Country: None (occurrence: None)
  Receive Date: 20100607
  Receipt Date: 20100528
  Transmission Date: 20101027
  Serious: Yes (Other)
  Sender: FDA-Public Use
  Company Number: GB-ASTRAZENECA-2010SE24842

PATIENT
  Sex: Female

DRUGS (4)
  1. SEROQUEL [Suspect]
     Route: 048
     Dates: start: 20100428, end: 20100518
  2. ASPIRIN [Concomitant]
     Route: 048
     Dates: start: 20090528
  3. METFORMIN [Concomitant]
     Route: 048
     Dates: start: 20090528
  4. SIMVASTATIN [Concomitant]
     Route: 048
     Dates: start: 20090528

REACTIONS (8)
  - EAR PAIN [None]
  - EPISTAXIS [None]
  - EYE DISORDER [None]
  - HEADACHE [None]
  - LIP SWELLING [None]
  - SWELLING [None]
  - SWOLLEN TONGUE [None]
  - WEIGHT INCREASED [None]
